FAERS Safety Report 10872839 (Version 1)
Quarter: 2015Q1

REPORT INFORMATION
  Report Type: Spontaneous
  Country: US (occurrence: None)
  Receive Date: 20150223
  Receipt Date: 20150223
  Transmission Date: 20150721
  Serious: Yes (Death, Congenital Anomaly)
  Sender: FDA-Public Use
  Company Number: None

PATIENT
  Age: 1 Day
  Sex: Male
  Weight: 2.4 kg

DRUGS (3)
  1. LISINOPRIL. [Suspect]
     Active Substance: LISINOPRIL
     Indication: HYPERTENSION
     Dosage: PRIOR TO CONCEPTION + THRU PREG?
  2. METFORMIN [Concomitant]
     Active Substance: METFORMIN HYDROCHLORIDE
  3. PAROXETINE [Concomitant]
     Active Substance: PAROXETINE\PAROXETINE HYDROCHLORIDE

REACTIONS (28)
  - Caesarean section [None]
  - Cleft palate [None]
  - Congenital musculoskeletal anomaly [None]
  - Pulmonary hypoplasia [None]
  - Macrocephaly [None]
  - Male genital examination abnormal [None]
  - Holt-Oram syndrome [None]
  - Cerebrospinal fluid retention [None]
  - Genitalia external ambiguous [None]
  - Cerebral disorder [None]
  - Thrombocytopenia-absent radius syndrome [None]
  - Foetal exposure during pregnancy [None]
  - Holoprosencephaly [None]
  - Foetal distress syndrome [None]
  - Skull malformation [None]
  - Anomaly of external ear congenital [None]
  - Limb malformation [None]
  - Limb hypoplasia congenital [None]
  - Rib deformity [None]
  - Gastrointestinal disorder congenital [None]
  - Bladder disorder [None]
  - Congenital eye disorder [None]
  - Congenital cystic kidney disease [None]
  - Single umbilical artery [None]
  - Scoliosis [None]
  - Oligohydramnios [None]
  - Single functional kidney [None]
  - Pterygium colli [None]

NARRATIVE: CASE EVENT DATE: 20141103
